FAERS Safety Report 8477117 (Version 5)
Quarter: 2012Q4

REPORT INFORMATION
  Report Type: 
  Country: US (occurrence: US)
  Receive Date: 20120326
  Receipt Date: 20121203
  Transmission Date: 20130627
  Serious: Yes (Hospitalization, Other)
  Sender: FDA-Public Use
  Company Number: US-009507513-1203USA02844

PATIENT

DRUGS (5)
  1. FOSAMAX [Suspect]
     Indication: OSTEOPOROSIS
     Dosage: 10 mg, UNK
     Route: 048
     Dates: start: 20000817, end: 20030127
  2. FOSAMAX [Suspect]
     Dosage: 70 mg, qw
     Route: 048
     Dates: start: 20030127, end: 20080729
  3. FOSAMAX PLUS D [Suspect]
     Indication: OSTEOPOROSIS
     Dosage: 70 mg, qw
     Route: 048
  4. ALENDRONATE SODIUM [Suspect]
     Indication: OSTEOPOROSIS
     Dosage: 70 mg, qw
     Route: 048
     Dates: start: 20080421, end: 20090721
  5. VITAMINS (UNSPECIFIED) [Concomitant]
     Dosage: UNK, qd
     Dates: start: 1990

REACTIONS (18)
  - Femur fracture [Recovered/Resolved]
  - Open reduction of fracture [Recovered/Resolved]
  - Limb asymmetry [Unknown]
  - Foot fracture [Unknown]
  - Low turnover osteopathy [Unknown]
  - Tooth infection [Unknown]
  - Intervertebral disc degeneration [Unknown]
  - Intervertebral disc protrusion [Unknown]
  - Osteoarthritis [Unknown]
  - Ear infection [Unknown]
  - Eye infection [Unknown]
  - Upper-airway cough syndrome [Unknown]
  - Scoliosis [Unknown]
  - Spinal deformity [Unknown]
  - Fall [Unknown]
  - Vitamin D deficiency [Unknown]
  - Excoriation [Unknown]
  - Drug ineffective [Unknown]
